FAERS Safety Report 25868064 (Version 1)
Quarter: 2025Q4

REPORT INFORMATION
  Report Type: Spontaneous
  Country: US (occurrence: US)
  Receive Date: 20251001
  Receipt Date: 20251001
  Transmission Date: 20260117
  Serious: Yes (Hospitalization)
  Sender: MDD OPERATIONS
  Company Number: US-SUP-SUP202507-002361

PATIENT

DRUGS (1)
  1. QELBREE [Suspect]
     Active Substance: VILOXAZINE HYDROCHLORIDE
     Indication: Product used for unknown indication
     Dosage: NOT PROVIDED

REACTIONS (4)
  - Ill-defined disorder [Unknown]
  - Condition aggravated [Unknown]
  - Disorientation [Unknown]
  - Adverse event [Unknown]

NARRATIVE: CASE EVENT DATE: 20250101
